FAERS Safety Report 10354827 (Version 2)
Quarter: 2014Q3

REPORT INFORMATION
  Report Type: Spontaneous
  Country: GB (occurrence: GB)
  Receive Date: 20140731
  Receipt Date: 20140731
  Transmission Date: 20150326
  Serious: Yes (Death, Hospitalization, Other)
  Sender: FDA-Public Use
  Company Number: GB-BAXTER-2014BAX035554

PATIENT
  Age: 83 Year
  Sex: Male
  Weight: 61.2 kg

DRUGS (1)
  1. EXTRANEAL (ICODEXTRIN 7.5%) SOLUTION FOR PERITONEAL DIALYSIS [Suspect]
     Active Substance: ICODEXTRIN
     Indication: PERITONEAL DIALYSIS
     Route: 033
     Dates: start: 20130910, end: 20140613

REACTIONS (6)
  - Renal failure chronic [Fatal]
  - Bloody peritoneal effluent [Unknown]
  - Myocardial infarction [Fatal]
  - Peritoneal cloudy effluent [Unknown]
  - Left ventricular failure [Fatal]
  - Chronic obstructive pulmonary disease [Fatal]

NARRATIVE: CASE EVENT DATE: 20140531
